FAERS Safety Report 9879677 (Version 2)
Quarter: 2014Q3

REPORT INFORMATION
  Report Type: Report from Study
  Country: JP (occurrence: JP)
  Receive Date: 20140206
  Receipt Date: 20140801
  Transmission Date: 20150326
  Serious: Yes (Other)
  Sender: FDA-Public Use
  Company Number: JP-VERTEX PHARMACEUTICALS INC-2014-000553

PATIENT
  Age: 58 Year
  Sex: Female

DRUGS (12)
  1. TELAPREVIR [Suspect]
     Active Substance: TELAPREVIR
     Dosage: 1500 MG, QD
     Route: 048
     Dates: start: 20120901, end: 20120906
  2. RIBAVIRIN. [Suspect]
     Active Substance: RIBAVIRIN
     Indication: CHRONIC HEPATITIS C
     Dosage: 600 MG, QD
     Route: 048
     Dates: start: 20120622, end: 20120712
  3. HIRUDOID [Concomitant]
     Active Substance: GLYCOSAMINOGLYCANS
     Indication: PRODUCT USED FOR UNKNOWN INDICATION
     Dosage: UNK, PRN
     Route: 061
     Dates: start: 20120622
  4. TELAPREVIR [Suspect]
     Active Substance: TELAPREVIR
     Indication: CHRONIC HEPATITIS C
     Dosage: 1500 MG, QD
     Route: 048
     Dates: start: 20120622, end: 20120719
  5. TELAPREVIR [Suspect]
     Active Substance: TELAPREVIR
     Dosage: 1750 MG, QD
     Route: 048
     Dates: start: 20120907, end: 20120913
  6. PEGINTERFERON ALFA-2B [Suspect]
     Active Substance: PEGINTERFERON ALFA-2B
     Indication: CHRONIC HEPATITIS C
     Dosage: 1.5 ?G, QW
     Route: 058
     Dates: start: 20120622
  7. MYSLEE [Concomitant]
     Active Substance: ZOLPIDEM TARTRATE
     Indication: PRODUCT USED FOR UNKNOWN INDICATION
     Dosage: 5 MG, UNK
     Route: 048
  8. TAKEPRON [Concomitant]
     Active Substance: LANSOPRAZOLE
     Indication: PRODUCT USED FOR UNKNOWN INDICATION
     Dosage: 15 MG, UNK
     Route: 048
     Dates: start: 20120622
  9. TELAPREVIR [Suspect]
     Active Substance: TELAPREVIR
     Dosage: 1000 MG, QD
     Route: 048
     Dates: start: 20120720, end: 20120816
  10. TELAPREVIR [Suspect]
     Active Substance: TELAPREVIR
     Dosage: 1250 MG, QD
     Route: 048
     Dates: start: 20120817, end: 20120831
  11. RIBAVIRIN. [Suspect]
     Active Substance: RIBAVIRIN
     Dosage: 200 MG, QD
     Route: 048
     Dates: start: 20120713, end: 20120719
  12. RIBAVIRIN. [Suspect]
     Active Substance: RIBAVIRIN
     Dosage: 200 MG, QOD
     Route: 048
     Dates: start: 20120720

REACTIONS (1)
  - White blood cell count decreased [Recovering/Resolving]

NARRATIVE: CASE EVENT DATE: 20120629
